FAERS Safety Report 6355115-8 (Version None)
Quarter: 2009Q3

REPORT INFORMATION
  Report Type: 
  Country: None (occurrence: None)
  Receive Date: 20090914
  Receipt Date: 20090901
  Transmission Date: 20100115
  Serious: Yes (Hospitalization)
  Sender: FDA-Public Use
  Company Number: US-JNJCH-2009024083

PATIENT
  Age: 78 Year
  Sex: Female

DRUGS (5)
  1. ASPIRIN [Suspect]
     Indication: PAIN
     Dosage: TEXT:AS NEEDED
     Route: 065
  2. INDAPAMIDE [Concomitant]
     Indication: DRUG USE FOR UNKNOWN INDICATION
     Dosage: TEXT:2.5 MG DAILY
     Route: 065
  3. LEVOTHYROXINE SODIUM [Concomitant]
     Indication: DRUG USE FOR UNKNOWN INDICATION
     Dosage: TEXT:0.1 MG DAILY
     Route: 065
  4. RANITIDINE [Concomitant]
     Indication: DRUG USE FOR UNKNOWN INDICATION
     Dosage: TEXT:150 MG TWICE DAILY
     Route: 065
  5. KETOROLAC TROMETHAMINE [Concomitant]
     Indication: PAIN
     Dosage: TEXT:10 MG EVERY SIX HOURS AS NEEDED
     Route: 065

REACTIONS (1)
  - THERAPEUTIC AGENT TOXICITY [None]
